FAERS Safety Report 7587366-9 (Version None)
Quarter: 2011Q3

REPORT INFORMATION
  Report Type: 
  Country: None (occurrence: None)
  Receive Date: 20110701
  Receipt Date: 20110627
  Transmission Date: 20111222
  Serious: Yes (Life-Threatening)
  Sender: FDA-Public Use
  Company Number: FR-ASTRAZENECA-2011SE38399

PATIENT
  Age: 21400 Day
  Sex: Female

DRUGS (10)
  1. NEBIVOLOL HCL [Concomitant]
  2. DUPHALAC [Concomitant]
  3. CRESTOR [Suspect]
     Route: 048
     Dates: end: 20110220
  4. NICARDIPINE HCL [Concomitant]
  5. IRBESARTAN [Suspect]
     Route: 048
     Dates: end: 20110220
  6. CORDARONE [Concomitant]
  7. TRANSIPEG [Concomitant]
  8. CALCIUM CARBONATE [Concomitant]
  9. NOVORAPID [Concomitant]
  10. LEVOTHYROXINE SODIUM [Concomitant]

REACTIONS (8)
  - RENAL TUBULAR NECROSIS [None]
  - DEHYDRATION [None]
  - HYPERKALAEMIA [None]
  - ANURIA [None]
  - RENAL FAILURE ACUTE [None]
  - DIARRHOEA [None]
  - ILEUS [None]
  - TRANSAMINASES INCREASED [None]
